FAERS Safety Report 8062662-X (Version None)
Quarter: 2012Q1

REPORT INFORMATION
  Report Type: 
  Country: None (occurrence: None)
  Receive Date: 20120123
  Receipt Date: 20120117
  Transmission Date: 20120608
  Serious: Yes (Other)
  Sender: FDA-Public Use
  Company Number: US-PFIZER INC-2012013415

PATIENT
  Sex: Female
  Weight: 103 kg

DRUGS (1)
  1. PREMARIN [Suspect]
     Indication: OESTROGEN REPLACEMENT THERAPY
     Dosage: UNK, 1X/DAY
     Route: 048
     Dates: start: 19850101

REACTIONS (1)
  - HYPERTENSION [None]
